FAERS Safety Report 9819220 (Version 3)
Quarter: 2014Q1

REPORT INFORMATION
  Report Type: Spontaneous
  Country: JP (occurrence: JP)
  Receive Date: 20140115
  Receipt Date: 20140326
  Transmission Date: 20141002
  Serious: Yes (Death, Life-Threatening)
  Sender: FDA-Public Use
  Company Number: JP-TEVA-456147USA

PATIENT
  Age: 68 Year
  Sex: Male

DRUGS (7)
  1. BENDAMUSTINE [Suspect]
     Indication: B-CELL LYMPHOMA
     Dosage: CYCLIC
     Route: 042
     Dates: start: 20131113, end: 20131114
  2. BENDAMUSTINE [Suspect]
     Dates: start: 201205, end: 201206
  3. RITUXIMAB [Concomitant]
     Route: 065
     Dates: start: 20131112, end: 20131112
  4. RITUXIMAB [Concomitant]
     Dates: start: 201205, end: 201206
  5. BETAMETHASONE W/DEXCHLORPHENIRAMINE MALEATE [Concomitant]
     Indication: PREMEDICATION
     Route: 048
     Dates: start: 20131112
  6. LOXOPROFEN SODIUM [Concomitant]
     Indication: PREMEDICATION
     Dosage: 60 MILLIGRAM DAILY;
     Route: 048
     Dates: start: 20131112
  7. GRANISETRON HYDROCHLORIDE [Concomitant]
     Indication: PREMEDICATION
     Dosage: 3 MG PER DAY
     Route: 042
     Dates: start: 20131113, end: 20131114

REACTIONS (2)
  - Cardiac failure [Fatal]
  - Blood creatine phosphokinase increased [Not Recovered/Not Resolved]
